FAERS Safety Report 16945056 (Version 1)
Quarter: 2019Q4

REPORT INFORMATION
  Report Type: Spontaneous
  Country: UZ (occurrence: UZ)
  Receive Date: 20191022
  Receipt Date: 20191022
  Transmission Date: 20200122
  Serious: Yes (Death, Other)
  Sender: FDA-Public Use
  Company Number: UZ-PFIZER INC-2019455660

PATIENT
  Age: 8 Year
  Sex: Female
  Weight: 13.16 kg

DRUGS (6)
  1. CLOFAZIMINE [Suspect]
     Active Substance: CLOFAZIMINE
     Dosage: 50 MG, 1X/DAY
     Route: 048
     Dates: start: 20181113, end: 20190426
  2. LINEZOLID. [Suspect]
     Active Substance: LINEZOLID
     Dosage: 300 MG, 1X/DAY
     Route: 048
     Dates: start: 20181113, end: 20190426
  3. PROTHIONAMIDE [Suspect]
     Active Substance: PROTIONAMIDE
     Dosage: 250 MG, 1X/DAY
     Route: 048
     Dates: start: 20181113, end: 20190426
  4. LEVOFLOXACIN. [Suspect]
     Active Substance: LEVOFLOXACIN
     Dosage: 250 MG, 1X/DAY
     Route: 048
     Dates: start: 20181113, end: 20190426
  5. DELAMANID [Suspect]
     Active Substance: DELAMANID
     Dosage: 500 MG, 2X/DAY
     Route: 048
     Dates: end: 20190426
  6. DELAMANID [Suspect]
     Active Substance: DELAMANID
     Dosage: 50 MG, UNK
     Route: 048
     Dates: start: 20181113

REACTIONS (5)
  - Off label use [Unknown]
  - Vomiting [Fatal]
  - Lactic acidosis [Fatal]
  - Dehydration [Fatal]
  - Electrolyte imbalance [Fatal]

NARRATIVE: CASE EVENT DATE: 20181113
